FAERS Safety Report 10347081 (Version 7)
Quarter: 2014Q4

REPORT INFORMATION
  Report Type: Report from Study
  Country: US (occurrence: US)
  Receive Date: 20140729
  Receipt Date: 20141226
  Transmission Date: 20150528
  Serious: Yes (Death)
  Sender: FDA-Public Use
  Company Number: US-ROCHE-1437797

PATIENT
  Age: 51 Year
  Sex: Male
  Weight: 77 kg

DRUGS (46)
  1. VEMURAFENIB [Suspect]
     Active Substance: VEMURAFENIB
     Dosage: DOSE INTERRUPTED DUE TO MISSED DOSE
     Route: 048
     Dates: start: 20140107, end: 20140108
  2. LEVOTHYROXINE [Concomitant]
     Active Substance: LEVOTHYROXINE
     Route: 048
     Dates: start: 20130830, end: 20140111
  3. LISINOPRIL. [Concomitant]
     Active Substance: LISINOPRIL
     Indication: BLOOD PRESSURE INCREASED
     Route: 048
     Dates: start: 20130119, end: 20130120
  4. LISINOPRIL. [Concomitant]
     Active Substance: LISINOPRIL
     Route: 048
     Dates: start: 20130122, end: 20130813
  5. FOLIC ACID. [Concomitant]
     Active Substance: FOLIC ACID
     Indication: ANAEMIA
     Route: 048
     Dates: start: 20130813
  6. CENTANY [Concomitant]
     Active Substance: MUPIROCIN
     Route: 058
     Dates: start: 20131105
  7. VEMURAFENIB [Suspect]
     Active Substance: VEMURAFENIB
     Dosage: DOSE INTERRUPTED DUE TO MISSED DOSE
     Route: 048
     Dates: start: 20140723, end: 20140806
  8. CALCITRIOL. [Concomitant]
     Active Substance: CALCITRIOL
     Indication: HYPOCALCAEMIA
     Route: 048
     Dates: start: 20080607, end: 20130409
  9. LEVOTHYROXINE [Concomitant]
     Active Substance: LEVOTHYROXINE
     Route: 048
     Dates: start: 20130129, end: 20130409
  10. LEVOTHYROXINE [Concomitant]
     Active Substance: LEVOTHYROXINE
     Route: 048
     Dates: start: 20130520, end: 20130829
  11. LEVOTHYROXINE [Concomitant]
     Active Substance: LEVOTHYROXINE
     Route: 048
     Dates: start: 20140112
  12. LISINOPRIL. [Concomitant]
     Active Substance: LISINOPRIL
     Route: 048
     Dates: start: 20131115
  13. TERBINAFINE HYDOCHLORIDE [Concomitant]
     Active Substance: TERBINAFINE HYDROCHLORIDE
     Indication: HYPERKERATOSIS
     Route: 048
     Dates: start: 20130219
  14. NAPROXEN. [Concomitant]
     Active Substance: NAPROXEN
     Route: 048
     Dates: start: 20130410, end: 20130422
  15. FERROUS SULFATE [Concomitant]
     Active Substance: FERROUS SULFATE\FERROUS SULFATE, DRIED
     Indication: ANAEMIA
     Route: 048
     Dates: start: 20130805
  16. DOXYCYCLINE HYCLATE. [Concomitant]
     Active Substance: DOXYCYCLINE HYCLATE
     Route: 048
     Dates: start: 20131205, end: 20131206
  17. VEMURAFENIB [Suspect]
     Active Substance: VEMURAFENIB
     Dosage: DOSE INTERRUPTED DUE TO MISSED DOSE
     Route: 048
     Dates: start: 20140207, end: 20140207
  18. HYDROCHLOROTHIAZIDE. [Concomitant]
     Active Substance: HYDROCHLOROTHIAZIDE
     Indication: HYPERTENSION
     Route: 048
     Dates: start: 20120828, end: 20130115
  19. LOCOID CREAM [Concomitant]
     Route: 058
     Dates: start: 20131029
  20. LOMOTIL (UNITED STATES) [Concomitant]
     Indication: DIARRHOEA
     Route: 054
     Dates: start: 20140520
  21. VEMURAFENIB [Suspect]
     Active Substance: VEMURAFENIB
     Dosage: DOSE INTERRUPTED DUE TO MISSED DOSE
     Route: 048
     Dates: start: 20131128, end: 20131129
  22. VEMURAFENIB [Suspect]
     Active Substance: VEMURAFENIB
     Dosage: DOSE INTERRUPTED DUE TO MISSED DOSE
     Route: 048
     Dates: start: 20131206, end: 20131207
  23. HYDROCHLOROTHIAZIDE. [Concomitant]
     Active Substance: HYDROCHLOROTHIAZIDE
     Route: 048
     Dates: start: 20130220
  24. LISINOPRIL. [Concomitant]
     Active Substance: LISINOPRIL
     Route: 048
     Dates: start: 20130814, end: 20131104
  25. VEMURAFENIB [Suspect]
     Active Substance: VEMURAFENIB
     Indication: PAPILLARY THYROID CANCER
     Dosage: DATE OF MOST RECENT DOSE PRIO TO SAE ONSET: 24/JUN/2014?DATE OF MOST RECENT DOSE PRIO TO SAE ONSET:
     Route: 048
     Dates: start: 20130129
  26. CALCIUM CARBONATE. [Concomitant]
     Active Substance: CALCIUM CARBONATE
     Route: 065
     Dates: start: 20080526
  27. CALCITRIOL. [Concomitant]
     Active Substance: CALCITRIOL
     Route: 048
     Dates: start: 20140523
  28. SERTRALINE HCL [Concomitant]
     Active Substance: SERTRALINE HYDROCHLORIDE
     Indication: DEPRESSION
     Route: 048
     Dates: start: 20120211
  29. CHLOROTHIAZIDE. [Concomitant]
     Active Substance: CHLOROTHIAZIDE
     Indication: BLOOD PRESSURE INCREASED
     Route: 048
     Dates: start: 20130115, end: 20130219
  30. LEVOTHYROXINE [Concomitant]
     Active Substance: LEVOTHYROXINE
     Indication: HYPOTHYROIDISM
     Route: 048
     Dates: start: 20120909, end: 20130129
  31. LOSARTAN [Concomitant]
     Active Substance: LOSARTAN
     Indication: BLOOD PRESSURE INCREASED
     Route: 048
     Dates: start: 20130425
  32. LANOLIN. [Concomitant]
     Active Substance: LANOLIN
     Dosage: OPH OINTMENT, 0.5 INCH OF STRIP
     Route: 058
     Dates: start: 20131215
  33. LEVOTHYROXINE [Concomitant]
     Active Substance: LEVOTHYROXINE
     Route: 048
     Dates: start: 20120821, end: 20130129
  34. POLYVINYL ALCOHOL 1.4% [Concomitant]
     Dosage: OPH DROPS
     Route: 050
     Dates: start: 20130808, end: 20131214
  35. DOCUSATE SODIUM. [Concomitant]
     Active Substance: DOCUSATE SODIUM
     Indication: DIARRHOEA
     Route: 048
     Dates: start: 20130805
  36. VEMURAFENIB [Suspect]
     Active Substance: VEMURAFENIB
     Dosage: DOSE INTERRUPTED DUE TO MISSED DOSE
     Route: 048
     Dates: start: 20140410, end: 20140411
  37. CYTOMEL [Concomitant]
     Active Substance: LIOTHYRONINE SODIUM
     Indication: BLOOD THYROID STIMULATING HORMONE INCREASED
     Route: 048
     Dates: start: 20130123, end: 20130129
  38. LORAZEPAM. [Concomitant]
     Active Substance: LORAZEPAM
     Indication: DEPRESSION
     Route: 048
     Dates: start: 20120114
  39. LEVOTHYROXINE [Concomitant]
     Active Substance: LEVOTHYROXINE
     Route: 048
     Dates: start: 20130513, end: 20130519
  40. LISINOPRIL. [Concomitant]
     Active Substance: LISINOPRIL
     Route: 048
     Dates: start: 20131105, end: 20131114
  41. TERBINAFINE HYDOCHLORIDE [Concomitant]
     Active Substance: TERBINAFINE HYDROCHLORIDE
     Route: 048
     Dates: start: 20130716, end: 20130723
  42. TERBINAFINE HYDOCHLORIDE [Concomitant]
     Active Substance: TERBINAFINE HYDROCHLORIDE
     Route: 048
     Dates: start: 20140529
  43. POLYVINYL ALCOHOL 1.4% [Concomitant]
     Dosage: 0.5 OUNCE
     Route: 050
     Dates: start: 20130808, end: 20131214
  44. BUPROPION HCL [Concomitant]
     Active Substance: BUPROPION HYDROCHLORIDE
     Indication: DEPRESSION
     Route: 048
     Dates: start: 20120114
  45. LEVOTHYROXINE [Concomitant]
     Active Substance: LEVOTHYROXINE
     Route: 048
     Dates: start: 20130410, end: 20130512
  46. UREA CREAM [Concomitant]
     Indication: ONYCHOMYCOSIS
     Route: 061
     Dates: start: 20140520

REACTIONS (1)
  - Adenocarcinoma gastric [Fatal]

NARRATIVE: CASE EVENT DATE: 20140624
